FAERS Safety Report 5649754-7 (Version None)
Quarter: 2008Q1

REPORT INFORMATION
  Report Type: 
  Country: None (occurrence: None)
  Receive Date: 20080131
  Receipt Date: 20071113
  Transmission Date: 20080703
  Serious: No
  Sender: FDA-Public Use
  Company Number: US200711003216

PATIENT
  Age: 58 Year
  Sex: Female
  Weight: 88.9 kg

DRUGS (5)
  1. BYETTA [Suspect]
     Indication: TYPE 2 DIABETES MELLITUS
     Dosage: 5 UG, 2/D, SUBCUTANEOUS; 10 UG, 2/D, SUBCUTANEOUS
     Route: 058
     Dates: start: 20071001, end: 20071101
  2. BYETTA [Suspect]
     Indication: TYPE 2 DIABETES MELLITUS
     Dosage: 5 UG, 2/D, SUBCUTANEOUS; 10 UG, 2/D, SUBCUTANEOUS
     Route: 058
     Dates: start: 20071101
  3. EXENATIDE 5MCG PEN, DISPOSABLE DEVICE (EXENATIDE PEN (5 MCG)) PEN,DISP [Concomitant]
  4. METFORMIN HCL [Concomitant]
  5. GLIPIZIDE [Concomitant]

REACTIONS (3)
  - DIARRHOEA [None]
  - EARLY SATIETY [None]
  - WEIGHT DECREASED [None]
